FAERS Safety Report 6871322-X (Version None)
Quarter: 2010Q3

REPORT INFORMATION
  Report Type: 
  Country: None (occurrence: None)
  Receive Date: 20100723
  Receipt Date: 20100714
  Transmission Date: 20110219
  Serious: Yes (Hospitalization)
  Sender: FDA-Public Use
  Company Number: JP-ELI_LILLY_AND_COMPANY-JP201007000342

PATIENT
  Age: 9 Year
  Sex: Male

DRUGS (2)
  1. HUMATROPE [Suspect]
     Indication: GROWTH HORMONE DEFICIENCY
     Dosage: UNK, UNK
     Route: 058
  2. PREDNISOLONE [Concomitant]
     Indication: GLOMERULONEPHRITIS MEMBRANOUS
     Dosage: 2.5 MG, OTHER
     Route: 065

REACTIONS (1)
  - GLOMERULONEPHRITIS MEMBRANOUS [None]
